FAERS Safety Report 6486743-7 (Version None)
Quarter: 2009Q4

REPORT INFORMATION
  Report Type: 
  Country: None (occurrence: None)
  Receive Date: 20091210
  Receipt Date: 20091201
  Transmission Date: 20100525
  Serious: Yes (Hospitalization)
  Sender: FDA-Public Use
  Company Number: DE-ROCHE-673191

PATIENT
  Age: 6 Year
  Sex: Male

DRUGS (3)
  1. TAMIFLU [Suspect]
     Indication: H1N1 INFLUENZA
     Route: 065
  2. VALPROATE SODIUM [Interacting]
     Indication: EPILEPSY
     Route: 065
  3. TOPIRAMATE [Concomitant]
     Indication: EPILEPSY

REACTIONS (5)
  - DRUG INTERACTION [None]
  - HAEMORRHAGE [None]
  - HEPATIC FAILURE [None]
  - LEUKOPENIA [None]
  - THROMBOCYTOPENIA [None]
